FAERS Safety Report 9649549 (Version 2)
Quarter: 2013Q4

REPORT INFORMATION
  Report Type: Spontaneous
  Country: US (occurrence: US)
  Receive Date: 20131028
  Receipt Date: 20131119
  Transmission Date: 20140711
  Serious: Yes (Death)
  Sender: FDA-Public Use
  Company Number: US-PFIZER INC-2013304738

PATIENT
  Sex: Male

DRUGS (2)
  1. XYNTHA [Suspect]
     Indication: FACTOR VIII DEFICIENCY
     Dosage: UNK
     Route: 042
  2. XYNTHA [Suspect]
     Indication: PROPHYLAXIS

REACTIONS (3)
  - Completed suicide [Fatal]
  - Social problem [Unknown]
  - Mental disorder [Unknown]
